FAERS Safety Report 9753951 (Version 1)
Quarter: 2013Q4

REPORT INFORMATION
  Report Type: Report from Study
  Country: US (occurrence: US)
  Receive Date: 20131213
  Receipt Date: 20131213
  Transmission Date: 20140711
  Serious: Yes (Other)
  Sender: FDA-Public Use
  Company Number: US-ELI_LILLY_AND_COMPANY-US201312001055

PATIENT
  Sex: Female

DRUGS (10)
  1. DULOXETINE HYDROCHLORIDE [Suspect]
     Indication: DEPRESSION
     Dosage: 60 MG, QD
     Route: 065
     Dates: end: 20131124
  2. DULOXETINE HYDROCHLORIDE [Suspect]
     Indication: FIBROMYALGIA
  3. OXYCODONE [Concomitant]
     Dosage: 5 MG, EACH MORNING
     Route: 065
  4. HYDROCHLOORTHIAZIDE [Concomitant]
     Dosage: 25 MG, EACH MORNING
     Route: 065
  5. OMEPRAZOLE [Concomitant]
     Dosage: UNK, UNKNOWN
     Route: 065
  6. MULTIVITAMIN [Concomitant]
     Dosage: UNK, EACH MORNING
     Route: 065
  7. CALCIUM [Concomitant]
     Dosage: UNK, EACH MORNING
  8. NAPROXEN [Concomitant]
     Dosage: 500 MG, PRN
     Route: 065
  9. METHOCARBAMOL [Concomitant]
     Dosage: 750 MG, PRN
     Route: 065
  10. ETHANOL [Concomitant]

REACTIONS (11)
  - Psychotic disorder [Not Recovered/Not Resolved]
  - Suicidal ideation [Not Recovered/Not Resolved]
  - Disturbance in attention [Not Recovered/Not Resolved]
  - Arthralgia [Not Recovered/Not Resolved]
  - Back pain [Not Recovered/Not Resolved]
  - Joint swelling [Not Recovered/Not Resolved]
  - Feeling abnormal [Not Recovered/Not Resolved]
  - Anxiety [Not Recovered/Not Resolved]
  - Headache [Not Recovered/Not Resolved]
  - Drug withdrawal syndrome [Not Recovered/Not Resolved]
  - Emotional disorder [Not Recovered/Not Resolved]
